FAERS Safety Report 19788505 (Version 1)
Quarter: 2021Q3

REPORT INFORMATION
  Report Type: Spontaneous
  Country: US (occurrence: US)
  Receive Date: 20210903
  Receipt Date: 20210903
  Transmission Date: 20211014
  Serious: No
  Sender: FDA-Public Use
  Company Number: US-AMGEN-USASP2021134481

PATIENT
  Age: 47 Year
  Sex: Male

DRUGS (12)
  1. DIVALPROEX [Concomitant]
     Active Substance: DIVALPROEX SODIUM
     Dosage: UNK
  2. ROSUVASTATIN. [Concomitant]
     Active Substance: ROSUVASTATIN
     Dosage: UNK
  3. OTEZLA [Suspect]
     Active Substance: APREMILAST
     Indication: PSORIASIS
     Dosage: 30 MILLIGRAM, BID
     Route: 048
     Dates: start: 20210729
  4. QUETIAPINE. [Concomitant]
     Active Substance: QUETIAPINE
     Dosage: UNK
  5. NOVOLOG [Concomitant]
     Active Substance: INSULIN ASPART
     Dosage: UNK
  6. TEMAZEPAM. [Concomitant]
     Active Substance: TEMAZEPAM
     Dosage: UNK
  7. METOPROLOL. [Concomitant]
     Active Substance: METOPROLOL
     Dosage: UNK
  8. LANTUS [Concomitant]
     Active Substance: INSULIN GLARGINE
     Dosage: UNK
  9. ULORIC [Concomitant]
     Active Substance: FEBUXOSTAT
     Dosage: UNK
  10. FUROSEMIDE. [Concomitant]
     Active Substance: FUROSEMIDE
     Dosage: UNK
  11. CALCIPOTRIENE. [Concomitant]
     Active Substance: CALCIPOTRIENE
     Dosage: UNK
  12. FEBUXOSTAT. [Concomitant]
     Active Substance: FEBUXOSTAT
     Dosage: UNK

REACTIONS (2)
  - Abdominal pain upper [Not Recovered/Not Resolved]
  - Nausea [Not Recovered/Not Resolved]

NARRATIVE: CASE EVENT DATE: 20210723
